FAERS Safety Report 10045399 (Version 1)
Quarter: 2014Q1

REPORT INFORMATION
  Report Type: Spontaneous
  Country: US (occurrence: None)
  Receive Date: 20140306
  Receipt Date: 20140306
  Transmission Date: 20141002
  Serious: Yes (Hospitalization, Other)
  Sender: FDA-Public Use
  Company Number: 163-21880-13064175

PATIENT
  Age: 59 Year
  Sex: Female

DRUGS (9)
  1. REVLIMID (LENALIDOMIDE) (25 MILLIGRAM, CAPSULES) [Suspect]
     Indication: PLASMA CELL MYELOMA
     Route: 048
     Dates: start: 201003
  2. LOMOTIL (LOMOTIL) (TABLETS) [Concomitant]
  3. CODEINE SULFATE (CODEINE SULFATE) [Concomitant]
  4. DEXAMETHASONE (DEXAMETHASONE) (TABLETS) [Concomitant]
  5. NORVASC (AMLODIPINE BESILATE) [Concomitant]
  6. MULTIVITAMINS (MULTIVITAMINS) [Concomitant]
  7. CALCIUM CITRATE WITH VITAMIN D (CALCIUM CITRATE W/ COLECALCIFEROL) [Concomitant]
  8. PERCOCET (OXYCOCET) [Concomitant]
  9. VITAMIN D3 (COLECALCIFEROL) [Concomitant]

REACTIONS (1)
  - Infection [None]
